FAERS Safety Report 6462074-6 (Version None)
Quarter: 2009Q4

REPORT INFORMATION
  Report Type: 
  Country: None (occurrence: None)
  Receive Date: 20091123
  Receipt Date: 20091106
  Transmission Date: 20100525
  Serious: Yes (Other)
  Sender: FDA-Public Use
  Company Number: AVE_01189_2009

PATIENT
  Sex: Female
  Weight: 96.6162 kg

DRUGS (4)
  1. CLONIDINE [Suspect]
     Indication: HYPERTENSION
     Dosage: (0.3 MG QD, VIA 1/WEEKLY PATCH TRANSDERMAL)
     Route: 062
     Dates: start: 20091001
  2. CATAPRES-TTS-1 [Concomitant]
  3. ANTIHYPERTENSIVES [Concomitant]
  4. OTHER MEDICATIONS [Concomitant]

REACTIONS (5)
  - ANAEMIA [None]
  - BLOOD PRESSURE INCREASED [None]
  - DRY SKIN [None]
  - PRODUCT ADHESION ISSUE [None]
  - PRODUCT SUBSTITUTION ISSUE [None]
